FAERS Safety Report 6509183-0 (Version None)
Quarter: 2009Q4

REPORT INFORMATION
  Report Type: 
  Country: None (occurrence: None)
  Receive Date: 20091221
  Receipt Date: 20091209
  Transmission Date: 20100525
  Serious: Yes (Hospitalization)
  Sender: FDA-Public Use
  Company Number: SE-B.I. PHARMACEUTICALS,INC./RIDGEFIELD-2009-SW-00288SW

PATIENT
  Sex: Female

DRUGS (13)
  1. SIFROL TAB. 0.18 MG [Suspect]
     Indication: PARAESTHESIA
     Dosage: 0.36 MG
     Route: 048
     Dates: start: 20071128, end: 20091007
  2. MINIDERM [Concomitant]
     Dosage: STRENGTH: 20%
  3. BISOPROLOL [Concomitant]
  4. LEVEMIR [Concomitant]
     Dosage: FORMULATION: SOLUTION FOR INJECTION, CARTRIDGE. STRENGTH: 100 E/ML
  5. AMLODIPINE [Concomitant]
  6. PROPAVAN [Concomitant]
  7. ZYLORIC [Concomitant]
  8. DUROFERON [Concomitant]
     Dosage: PROLONGED-RELEASE TABLET, 100 MG F2+
  9. EMOVAT [Concomitant]
     Dosage: STRENGTH: 0.05%
  10. FURIX [Concomitant]
     Dosage: 6-7 TABLETS ACCORDING TO DESCRIPTION (PROBABLY DAILY BUT THIS IS NR)
  11. ACETAMINOPHEN W/ CODEINE [Concomitant]
     Dosage: STRENGTH: 500 MG/30 MG
  12. ALVEDON FORTE [Concomitant]
  13. NOVOMIX 30 FLEXPEN [Concomitant]
     Dosage: FORMULATION: PRE-FILLED PEN, STERNGTH 100 E/ML

REACTIONS (2)
  - CARDIAC FAILURE [None]
  - OEDEMA [None]
